FAERS Safety Report 21555647 (Version 2)
Quarter: 2022Q4

REPORT INFORMATION
  Report Type: Spontaneous
  Country: FR (occurrence: FR)
  Receive Date: 20221104
  Receipt Date: 20221118
  Transmission Date: 20230113
  Serious: Yes (Life-Threatening, Hospitalization)
  Sender: FDA-Public Use
  Company Number: None

PATIENT
  Age: 42 Year
  Sex: Male

DRUGS (7)
  1. ACETAMINOPHEN [Suspect]
     Active Substance: ACETAMINOPHEN
     Indication: Toxicity to various agents
     Dosage: UNIT DOSE : 2500 MG   , FREQUENCY TIME : 1 TOTAL   , DURATION : 1 DAY
     Route: 065
     Dates: start: 20220310, end: 20220310
  2. BROMAZEPAM [Suspect]
     Active Substance: BROMAZEPAM
     Indication: Toxicity to various agents
     Dosage: UNIT DOSE : 360 MG   , FREQUENCY TIME :1 TOTAL   , DURATION :  1 DAY
     Dates: start: 20220310, end: 20220310
  3. VENLAFAXINE [Suspect]
     Active Substance: VENLAFAXINE HYDROCHLORIDE
     Indication: Toxicity to various agents
     Dosage: UNIT DOSE : 2250 MG   , FREQUENCY TIME :  1 TOTAL , DURATION :  1 DAY
     Dates: start: 20220310, end: 20220310
  4. PROPRANOLOL HYDROCHLORIDE [Suspect]
     Active Substance: PROPRANOLOL HYDROCHLORIDE
     Indication: Toxicity to various agents
     Dosage: CHLORHYDRATE DE PROPRANOLOL , UNIT DOSE : 1600 MG  , FREQUENCY TIME :  1 TOTAL  , DURATION :  1 DAY
     Dates: start: 20220310, end: 20220310
  5. CODEINE [Suspect]
     Active Substance: CODEINE
     Indication: Toxicity to various agents
     Dosage: UNIT DOSE : 900 MG   , FREQUENCY TIME : 1 TOTAL  , DURATION :  1 DAY
     Dates: start: 20220310, end: 20220310
  6. LORMETAZEPAM [Suspect]
     Active Substance: LORMETAZEPAM
     Indication: Toxicity to various agents
     Dosage: UNIT DOSE :  56 MG  , FREQUENCY TIME : 1 TOTAL   , DURATION :  1 DAY
     Dates: start: 20220310, end: 20220310
  7. TRIMEPRAZINE [Suspect]
     Active Substance: TRIMEPRAZINE
     Indication: Toxicity to various agents
     Dosage: UNIT DOSE : 2500 MG   , FREQUENCY TIME :  1 TOTAL  , DURATION :  1 DAY
     Dates: start: 20220310, end: 20220310

REACTIONS (3)
  - Cardiogenic shock [Recovered/Resolved]
  - Toxicity to various agents [Recovered/Resolved]
  - Coma [Recovered/Resolved]

NARRATIVE: CASE EVENT DATE: 20220310
